FAERS Safety Report 11924070 (Version 1)
Quarter: 2016Q1

REPORT INFORMATION
  Report Type: Spontaneous
  Country: US (occurrence: US)
  Receive Date: 20160118
  Receipt Date: 20160118
  Transmission Date: 20160526
  Serious: No
  Sender: FDA-Public Use
  Company Number: US-009507513-1512USA012560

PATIENT
  Age: 17 Year
  Sex: Female
  Weight: 70.3 kg

DRUGS (1)
  1. NEXPLANON [Suspect]
     Active Substance: ETONOGESTREL
     Dosage: UNKNOWN
     Route: 059
     Dates: start: 20150115, end: 20151218

REACTIONS (5)
  - Metrorrhagia [Unknown]
  - Menorrhagia [Unknown]
  - Pelvic pain [Unknown]
  - Mood swings [Unknown]
  - Device breakage [Recovered/Resolved]

NARRATIVE: CASE EVENT DATE: 2015
